FAERS Safety Report 6533349-7 (Version None)
Quarter: 2010Q1

REPORT INFORMATION
  Report Type: 
  Country: None (occurrence: None)
  Receive Date: 20100111
  Receipt Date: 20100106
  Transmission Date: 20100710
  Serious: Yes (Hospitalization)
  Sender: FDA-Public Use
  Company Number: B0623746A

PATIENT
  Age: 10 Month
  Sex: Male

DRUGS (3)
  1. CLAMOXYL [Suspect]
     Indication: NASOPHARYNGITIS
     Route: 048
     Dates: start: 20081108, end: 20081117
  2. DOLIPRANE [Suspect]
     Indication: NASOPHARYNGITIS
     Route: 048
     Dates: start: 20081108
  3. MUCOMYST [Suspect]
     Indication: NASOPHARYNGITIS
     Route: 048
     Dates: start: 20081108

REACTIONS (6)
  - LYMPHOCYTOSIS [None]
  - OEDEMA PERIPHERAL [None]
  - PRURITUS [None]
  - PYREXIA [None]
  - TACHYCARDIA [None]
  - URTICARIA [None]
